FAERS Safety Report 8470145-8 (Version None)
Quarter: 2012Q2

REPORT INFORMATION
  Report Type: 
  Country: None (occurrence: None)
  Receive Date: 20120627
  Receipt Date: 20120508
  Transmission Date: 20120825
  Serious: Yes (Hospitalization)
  Sender: FDA-Public Use
  Company Number: AU-BRISTOL-MYERS SQUIBB COMPANY-16683252

PATIENT
  Age: 60 Year
  Sex: Female
  Weight: 84 kg

DRUGS (8)
  1. ORENCIA [Suspect]
     Indication: RHEUMATOID ARTHRITIS
     Dosage: INTER ON 09MAY12
     Route: 042
     Dates: start: 20071214
  2. LERCANIDIPINE [Concomitant]
  3. METHOTREXATE [Concomitant]
  4. IRBESARTAN AND HYDROCHLOROTHIAZIDE [Concomitant]
  5. RABEPRAZOLE SODIUM [Concomitant]
  6. EFFEXOR [Concomitant]
  7. ATENOLOL [Concomitant]
  8. FOLIC ACID [Concomitant]

REACTIONS (1)
  - ANKLE FRACTURE [None]
